FAERS Safety Report 24362807 (Version 1)
Quarter: 2024Q3

REPORT INFORMATION
  Report Type: Report from Study
  Country: ES (occurrence: ES)
  Receive Date: 20240925
  Receipt Date: 20240925
  Transmission Date: 20241017
  Serious: Yes (Hospitalization)
  Sender: SANOFI AVENTIS
  Company Number: ES-REGENERON PHARMACEUTICALS, INC.-2024-125017

PATIENT
  Age: 60 Year
  Sex: Female
  Weight: 115.7 kg

DRUGS (7)
  1. UBAMATAMAB [Suspect]
     Active Substance: UBAMATAMAB
     Indication: Ovarian cancer
     Dosage: 1 MG, QD
     Route: 042
     Dates: start: 20240916, end: 20240916
  2. SARILUMAB [Suspect]
     Active Substance: SARILUMAB
     Indication: Ovarian cancer
     Dosage: 350 MG, QD (SARILUMAB COHORT 3E)
     Route: 042
     Dates: start: 20240916, end: 20240916
  3. DEXKETOPROFEN [Concomitant]
     Active Substance: DEXKETOPROFEN
     Indication: Myalgia
     Dosage: 25 MG, PRN
     Route: 048
     Dates: start: 202002
  4. ESCITALOPRAM OXALATE [Concomitant]
     Active Substance: ESCITALOPRAM OXALATE
     Indication: Depression
     Dosage: 15 MG, QD
     Route: 048
     Dates: start: 202306
  5. MAGNESIUM HYDROXIDE [Concomitant]
     Active Substance: MAGNESIUM HYDROXIDE
     Indication: Nutritional supplementation
     Dosage: 350 MG, QD
     Route: 048
     Dates: start: 202308
  6. MELATONIN [Concomitant]
     Active Substance: MELATONIN
     Indication: Insomnia
     Dosage: 2.5 MG, QD
     Route: 048
     Dates: start: 202308
  7. ZOLMITRIPTAN [Concomitant]
     Active Substance: ZOLMITRIPTAN
     Indication: Migraine
     Dosage: 5 MG, PRN
     Route: 048
     Dates: start: 201710

REACTIONS (1)
  - Abdominal pain [Recovered/Resolved]

NARRATIVE: CASE EVENT DATE: 20240917
